FAERS Safety Report 13906861 (Version 1)
Quarter: 2017Q3

REPORT INFORMATION
  Report Type: Spontaneous
  Country: AU (occurrence: AU)
  Receive Date: 20170825
  Receipt Date: 20170825
  Transmission Date: 20171127
  Serious: Yes (Other)
  Sender: FDA-Public Use
  Company Number: AU-LPDUSPRD-20150262

PATIENT
  Age: 40 Year
  Sex: Male

DRUGS (4)
  1. FERINJECT [Suspect]
     Active Substance: FERRIC CARBOXYMALTOSE
     Dosage: UNSPECIFIED
     Route: 065
     Dates: start: 2013
  2. VENOFER [Suspect]
     Active Substance: IRON SUCROSE
     Dosage: UNSPECIFIED
     Route: 065
  3. AMYLOFER(IRON III HYDROXIDE POLYMALTOSE COMPLEX) [Suspect]
     Active Substance: IRON POLYMALTOSE
     Dosage: UNSPECIFIED
     Route: 042
  4. INFLIXIMAB [Suspect]
     Active Substance: INFLIXIMAB
     Dosage: UNSPECIFIED
     Route: 065

REACTIONS (8)
  - Inflammatory bowel disease [Unknown]
  - Hypophosphataemic rickets [Unknown]
  - Systemic lupus erythematosus [Unknown]
  - Spondyloarthropathy [Unknown]
  - Fibromyalgia [Unknown]
  - Incorrect route of drug administration [Unknown]
  - Multiple fractures [Unknown]
  - Hypophosphatasia [Unknown]
